FAERS Safety Report 8310477-7 (Version None)
Quarter: 2012Q2

REPORT INFORMATION
  Report Type: 
  Country: None (occurrence: None)
  Receive Date: 20120425
  Receipt Date: 20120416
  Transmission Date: 20120825
  Serious: Yes (Hospitalization)
  Sender: FDA-Public Use
  Company Number: SE-JNJFOC-20120407633

PATIENT
  Age: 38 Year
  Sex: Male

DRUGS (3)
  1. CONCERTA [Suspect]
     Indication: ATTENTION DEFICIT/HYPERACTIVITY DISORDER
     Dosage: 2 TABLETS 36 MG IN THE MORNING (25-APR-2011 TO SEP-OCT-2011)
     Route: 048
     Dates: start: 20110425
  2. RITALIN [Suspect]
     Indication: PRODUCT USED FOR UNKNOWN INDICATION
     Route: 065
     Dates: start: 20110301
  3. RITALIN [Suspect]
     Route: 065
     Dates: start: 20101001

REACTIONS (4)
  - PSYCHOTIC DISORDER [None]
  - ROAD TRAFFIC ACCIDENT [None]
  - OFF LABEL USE [None]
  - WEIGHT DECREASED [None]
